FAERS Safety Report 10926127 (Version 1)
Quarter: 2015Q1

REPORT INFORMATION
  Report Type: Spontaneous
  Country: US (occurrence: None)
  Receive Date: 20150316
  Receipt Date: 20150316
  Transmission Date: 20150721
  Serious: Yes (Hospitalization)
  Sender: FDA-Public Use
  Company Number: None

PATIENT
  Age: 3 Year
  Sex: Male
  Weight: 16.6 kg

DRUGS (1)
  1. DEXAMETHASONE. [Suspect]
     Active Substance: DEXAMETHASONE
     Dates: end: 20150206

REACTIONS (7)
  - Neutropenia [None]
  - Cellulitis [None]
  - Pneumovirus test positive [None]
  - Pain [None]
  - Erythema [None]
  - Pseudomonas test positive [None]
  - Upper respiratory tract infection [None]

NARRATIVE: CASE EVENT DATE: 20150206
